FAERS Safety Report 7943354-1 (Version None)
Quarter: 2011Q4

REPORT INFORMATION
  Report Type: 
  Country: None (occurrence: None)
  Receive Date: 20111128
  Receipt Date: 20111116
  Transmission Date: 20120403
  Serious: Yes (Hospitalization)
  Sender: FDA-Public Use
  Company Number: FR-SANOFI-AVENTIS-2011SA075537

PATIENT
  Age: 29 Year
  Sex: Female

DRUGS (1)
  1. APIDRA SOLOSTAR [Suspect]
     Route: 058

REACTIONS (3)
  - HOSPITALISATION [None]
  - EXPIRED DRUG ADMINISTERED [None]
  - ASTHENIA [None]
